FAERS Safety Report 9795930 (Version 1)
Quarter: 2014Q1

REPORT INFORMATION
  Report Type: Spontaneous
  Country: FR (occurrence: FR)
  Receive Date: 20140103
  Receipt Date: 20140103
  Transmission Date: 20141002
  Serious: Yes (Hospitalization)
  Sender: FDA-Public Use
  Company Number: FR-SA-2013SA136433

PATIENT
  Age: 90 Year
  Sex: Female

DRUGS (11)
  1. BI-TILDIEM [Suspect]
     Indication: HYPERTENSION
     Route: 065
     Dates: end: 20130819
  2. FUROSEMIDE [Suspect]
     Indication: HYPERTENSION
     Route: 065
     Dates: end: 20130819
  3. TRINIPATCH [Suspect]
     Indication: ISCHAEMIC CARDIOMYOPATHY
     Route: 065
     Dates: end: 20130819
  4. ATACAND [Suspect]
     Indication: HYPERTENSION
     Route: 065
     Dates: end: 20130819
  5. DIGOXINE [Concomitant]
     Indication: ATRIAL FIBRILLATION
     Dates: end: 20130814
  6. AERIUS [Concomitant]
  7. PARIET [Concomitant]
  8. SINGULAIR [Concomitant]
  9. PREVISCAN [Concomitant]
     Indication: ATRIAL FIBRILLATION
     Dates: end: 20130816
  10. PREVISCAN [Concomitant]
     Indication: ATRIAL FIBRILLATION
  11. PARACETAMOL [Concomitant]
     Indication: PAIN
     Dates: end: 20130816

REACTIONS (2)
  - Asthenia [Recovered/Resolved]
  - Hypotension [Recovered/Resolved]
